FAERS Safety Report 13509523 (Version 1)
Quarter: 2017Q2

REPORT INFORMATION
  Report Type: Spontaneous
  Country: US (occurrence: US)
  Receive Date: 20170503
  Receipt Date: 20170503
  Transmission Date: 20170830
  Serious: No
  Sender: FDA-Public Use
  Company Number: US-SA-2017SA036085

PATIENT
  Age: 74 Year
  Sex: Female
  Weight: 70.3 kg

DRUGS (17)
  1. VITAMIN D2 [Concomitant]
     Active Substance: ERGOCALCIFEROL
     Dosage: DOSE:50000 UNIT(S)
     Dates: start: 201701
  2. MILK THISTLE [Concomitant]
     Active Substance: MILK THISTLE
  3. VITAMIN B12 [Concomitant]
     Active Substance: CYANOCOBALAMIN
  4. L-LYSINE [Concomitant]
     Active Substance: LYSINE
  5. ALIROCUMAB PREFILLED PEN [Concomitant]
     Active Substance: ALIROCUMAB
     Indication: BLOOD CHOLESTEROL
     Dates: start: 20160425
  6. OMEGA 3-6-9 [Concomitant]
     Active Substance: FISH OIL
  7. FISH OIL [Concomitant]
     Active Substance: FISH OIL
  8. METOPROLOL. [Concomitant]
     Active Substance: METOPROLOL
     Dates: start: 2014
  9. ZINC. [Concomitant]
     Active Substance: ZINC
  10. IODINE. [Concomitant]
     Active Substance: IODINE
  11. PRALUENT [Suspect]
     Active Substance: ALIROCUMAB
     Indication: BLOOD CHOLESTEROL
     Route: 058
     Dates: start: 20160425
  12. LEVOCARNITINE. [Concomitant]
     Active Substance: LEVOCARNITINE
  13. ASPIRIN. [Concomitant]
     Active Substance: ASPIRIN
  14. CLOPIDOGREL [Concomitant]
     Active Substance: CLOPIDOGREL BISULFATE
     Dates: start: 2014
  15. VITAMIN A+E [Concomitant]
  16. COQ10 [Concomitant]
     Active Substance: UBIDECARENONE
  17. MAGNESIUM [Concomitant]
     Active Substance: MAGNESIUM

REACTIONS (4)
  - Pigmentation disorder [Not Recovered/Not Resolved]
  - Weight increased [Not Recovered/Not Resolved]
  - Hot flush [Not Recovered/Not Resolved]
  - Pruritus [Not Recovered/Not Resolved]
